FAERS Safety Report 9967245 (Version 2)
Quarter: 2014Q1

REPORT INFORMATION
  Report Type: Report from Study
  Country: US (occurrence: US)
  Receive Date: 20140305
  Receipt Date: 20140305
  Transmission Date: 20141002
  Serious: Yes (Hospitalization)
  Sender: FDA-Public Use
  Company Number: US-ABBVIE-13P-163-1100092-00

PATIENT
  Age: 58 Year
  Sex: Female

DRUGS (8)
  1. HUMIRA [Suspect]
     Indication: CROHN^S DISEASE
  2. HUMIRA [Suspect]
     Dates: start: 20130523
  3. HUMIRA [Suspect]
     Dates: start: 20130713
  4. FLAGYL [Suspect]
     Indication: PRODUCT USED FOR UNKNOWN INDICATION
     Dosage: HIGH DOSE
  5. CELEXA [Concomitant]
     Indication: DEPRESSION
  6. OMEPRAZOLE [Concomitant]
     Indication: GASTROOESOPHAGEAL REFLUX DISEASE
  7. ATIVAN [Concomitant]
     Indication: INSOMNIA
     Dosage: 2 MG QHS PRN
  8. PREDNISONE [Concomitant]
     Indication: PRODUCT USED FOR UNKNOWN INDICATION
     Dosage: WEANING OFF

REACTIONS (9)
  - Abdominal pain [Unknown]
  - Diarrhoea [Unknown]
  - Fistula [Unknown]
  - Impaired healing [Unknown]
  - Abscess [Unknown]
  - Injection site pain [Unknown]
  - Drug ineffective [Unknown]
  - Injection site pain [Unknown]
  - Gastric disorder [Unknown]
